FAERS Safety Report 6602788-8 (Version None)
Quarter: 2010Q1

REPORT INFORMATION
  Report Type: 
  Country: None (occurrence: None)
  Receive Date: 20100226
  Receipt Date: 20100215
  Transmission Date: 20100710
  Serious: Yes (Disabling, Other)
  Sender: FDA-Public Use
  Company Number: GB-RANBAXY-2010RR-31177

PATIENT
  Age: 43 Year
  Sex: Female

DRUGS (6)
  1. AMOXICILLIN AND CLAVULANATE POTASSIUM [Suspect]
     Indication: LOWER RESPIRATORY TRACT INFECTION
     Dosage: 1 DF, TID
     Route: 048
     Dates: start: 20100201, end: 20100201
  2. AMOXICILLIN AND CLAVULANATE POTASSIUM [Suspect]
     Indication: URINARY TRACT INFECTION
  3. BALNEUS PLUS BATH ADDITIVE [Concomitant]
     Indication: SKIN DISORDER
  4. CLOTRIMAZOLE [Concomitant]
     Indication: CANDIDIASIS
     Dosage: 1 DF, UNK
     Route: 067
     Dates: start: 20100201, end: 20100201
  5. LEVOTHYROXINE SODIUM [Concomitant]
     Indication: THYROID DISORDER
     Dosage: 1 DF, UNK
     Route: 048
  6. CROMOLYN SODIUM [Concomitant]
     Indication: EYE PRURITUS
     Dosage: UNK

REACTIONS (4)
  - ABASIA [None]
  - DIARRHOEA [None]
  - RASH [None]
  - VOMITING [None]
